FAERS Safety Report 10231371 (Version 1)
Quarter: 2014Q2

REPORT INFORMATION
  Report Type: Spontaneous
  Country: US (occurrence: US)
  Receive Date: 20140611
  Receipt Date: 20140611
  Transmission Date: 20141212
  Serious: Yes (Other)
  Sender: FDA-Public Use
  Company Number: US-PFIZER INC-2014157443

PATIENT
  Age: 24 Month
  Sex: Female

DRUGS (1)
  1. CHILDREN^S MOTRIN [Suspect]
     Dosage: UNK
     Route: 065
     Dates: end: 20140511

REACTIONS (5)
  - Anaphylactic reaction [Recovered/Resolved]
  - Swelling face [Recovered/Resolved]
  - Urticaria [Recovered/Resolved]
  - Lethargy [Recovered/Resolved]
  - Cough [Recovered/Resolved]
